FAERS Safety Report 6977079-6 (Version None)
Quarter: 2010Q3

REPORT INFORMATION
  Report Type: 
  Country: None (occurrence: None)
  Receive Date: 20100910
  Receipt Date: 20100831
  Transmission Date: 20110219
  Serious: Yes (Other)
  Sender: FDA-Public Use
  Company Number: JP-SANOFI-AVENTIS-2010SA052766

PATIENT

DRUGS (2)
  1. ARAVA [Suspect]
     Indication: RHEUMATOID ARTHRITIS
     Dosage: INITIAL DOSE 100 MG/DAY FOR 3 DAYS.
     Route: 048
  2. ARAVA [Suspect]
     Dosage: AS MAINTENANCE DOSE, 20MG OR 10MG/DAY.
     Route: 048

REACTIONS (1)
  - VIITH NERVE PARALYSIS [None]
